FAERS Safety Report 23923027 (Version 3)
Quarter: 2025Q2

REPORT INFORMATION
  Report Type: Report from Study
  Country: BR (occurrence: BR)
  Receive Date: 20240531
  Receipt Date: 20250602
  Transmission Date: 20250716
  Serious: Yes (Other)
  Sender: CELLTRION
  Company Number: BR-CELLTRION INC.-2024BR012556

PATIENT

DRUGS (14)
  1. INFLIXIMAB-DYYB [Suspect]
     Active Substance: INFLIXIMAB-DYYB
     Indication: Rheumatoid arthritis
     Route: 042
     Dates: start: 20221028
  2. INFLIXIMAB-DYYB [Suspect]
     Active Substance: INFLIXIMAB-DYYB
     Dosage: 250 MG, EVERY 4 WEEKS
     Route: 042
     Dates: start: 20221028
  3. LOSARTAN [Concomitant]
     Active Substance: LOSARTAN
     Indication: Hypertension
     Route: 048
  4. LOSARTAN [Concomitant]
     Active Substance: LOSARTAN
     Route: 048
  5. METFORMIN [Concomitant]
     Active Substance: METFORMIN HYDROCHLORIDE
     Indication: Diabetes mellitus
     Route: 048
  6. METHOTREXATE [Concomitant]
     Active Substance: METHOTREXATE
     Indication: Rheumatoid arthritis
     Route: 048
  7. HYDROXYCHLOROQUINE [Concomitant]
     Active Substance: HYDROXYCHLOROQUINE
     Indication: Rheumatoid arthritis
     Route: 048
  8. HYDROXYCHLOROQUINE [Concomitant]
     Active Substance: HYDROXYCHLOROQUINE
     Route: 048
  9. HYDROCHLOROTHIAZIDE [Concomitant]
     Active Substance: HYDROCHLOROTHIAZIDE
     Indication: Abdominal distension
     Route: 048
  10. GLIFAGE [Concomitant]
     Active Substance: METFORMIN HYDROCHLORIDE
     Indication: Glucose tolerance impaired
     Route: 048
  11. CODEX [CODEINE PHOSPHATE;PARACETAMOL] [Concomitant]
     Indication: Pain
     Route: 048
  12. DIPYRONE [Concomitant]
     Active Substance: DIPYRONE
     Indication: Surgery
     Route: 048
     Dates: start: 20250516
  13. LISADOR DIP [Concomitant]
     Indication: Surgery
     Route: 048
     Dates: start: 20250516
  14. TRAMADOL [Concomitant]
     Active Substance: TRAMADOL
     Indication: Surgery
     Route: 065

REACTIONS (5)
  - Rheumatoid arthritis [Unknown]
  - Dengue fever [Recovered/Resolved]
  - Influenza [Recovered/Resolved]
  - Intentional dose omission [Recovered/Resolved]
  - Intentional product use issue [Unknown]

NARRATIVE: CASE EVENT DATE: 20240311
